FAERS Safety Report 17032250 (Version 3)
Quarter: 2020Q4

REPORT INFORMATION
  Report Type: Report from Study
  Country: US (occurrence: US)
  Receive Date: 20191114
  Receipt Date: 20201103
  Transmission Date: 20210113
  Serious: Yes (Death, Life-Threatening, Hospitalization, Other)
  Sender: FDA-Public Use
  Company Number: NVSC2019US002111

PATIENT
  Age: 25 Year
  Sex: Male

DRUGS (3)
  1. CYCLOPHOSPHAMIDE. [Concomitant]
     Active Substance: CYCLOPHOSPHAMIDE
     Indication: CHEMOTHERAPY
     Dosage: UNK
     Route: 065
  2. KYMRIAH [Suspect]
     Active Substance: TISAGENLECLEUCEL
     Indication: B-CELL TYPE ACUTE LEUKAEMIA
     Dosage: (DOSE OF CELLS IN 3 BAGS COMBINED (2.4 X 10-8 WITH EACH DOSE HAD 0.8 X 10E8)
     Route: 065
     Dates: start: 20190912
  3. FLUDARABINE [Concomitant]
     Active Substance: FLUDARABINE PHOSPHATE
     Indication: CHEMOTHERAPY
     Dosage: UNK
     Route: 065

REACTIONS (29)
  - Neurotoxicity [Recovered/Resolved]
  - Status epilepticus [Unknown]
  - Seizure [Unknown]
  - Pulmonary toxicity [Unknown]
  - Cardiotoxicity [Unknown]
  - Delirium [Unknown]
  - Aggression [Unknown]
  - Treatment failure [Unknown]
  - Cytokine release syndrome [Recovered/Resolved]
  - Cytopenia [Unknown]
  - Neutropenia [Not Recovered/Not Resolved]
  - Thrombocytopenia [Not Recovered/Not Resolved]
  - Urinary tract infection enterococcal [Unknown]
  - Organ failure [Unknown]
  - Lymphocyte count decreased [Unknown]
  - Staphylococcal infection [Unknown]
  - Septic shock [Fatal]
  - Hepatic failure [Unknown]
  - Enterococcal infection [Unknown]
  - Depressed level of consciousness [Unknown]
  - Confusional state [Unknown]
  - Haemoglobin decreased [Unknown]
  - Encephalopathy [Unknown]
  - Aphasia [Unknown]
  - Pyrexia [Unknown]
  - Brain oedema [Unknown]
  - Haematocrit decreased [Unknown]
  - Burkholderia cepacia complex infection [Unknown]
  - Hypoxia [Unknown]
